FAERS Safety Report 6121953-X (Version None)
Quarter: 2009Q1

REPORT INFORMATION
  Report Type: 
  Country: None (occurrence: None)
  Receive Date: 20090313
  Receipt Date: 20090226
  Transmission Date: 20090719
  Serious: Yes (Life-Threatening, Hospitalization)
  Sender: FDA-Public Use
  Company Number: 187183ISR

PATIENT
  Age: 74 Year
  Sex: Female

DRUGS (10)
  1. BISOPRODOL FUMARATE [Suspect]
     Indication: HYPERTENSION
     Dosage: 5 MG (2.5 MG, 2 IN 1 D), ORAL
     Route: 048
  2. INSULIN ASPART [Suspect]
     Indication: TYPE 2 DIABETES MELLITUS
     Dosage: 20 IU (16-8-12IU)  SUBCUTANEOUS
     Route: 058
     Dates: start: 20080301
  3. PHENPROCOUMON [Concomitant]
  4. VALPROIC ACID [Concomitant]
  5. AMLODIPINE [Concomitant]
  6. FUROSEMIDE [Concomitant]
  7. DOXAZOSIN MESYLATE [Concomitant]
  8. CANDESARTAN [Concomitant]
  9. SERTRALINE HCL [Concomitant]
  10. METAMIZOLE SODIUM [Concomitant]

REACTIONS (4)
  - ASTHENIA [None]
  - DRUG INTERACTION [None]
  - HYPOGLYCAEMIA [None]
  - VOMITING [None]
